FAERS Safety Report 9645160 (Version 2)
Quarter: 2013Q4

REPORT INFORMATION
  Report Type: Spontaneous
  Country: US (occurrence: US)
  Receive Date: 20131025
  Receipt Date: 20131129
  Transmission Date: 20140711
  Serious: No
  Sender: FDA-Public Use
  Company Number: US-PFIZER INC-2013303918

PATIENT
  Age: 73 Year
  Sex: Female
  Weight: 56.7 kg

DRUGS (2)
  1. PREMARIN [Suspect]
     Indication: VULVOVAGINAL DRYNESS
     Dosage: 1 G, 2X/WEEK
     Route: 067
  2. BONIVA [Concomitant]
     Indication: BONE DISORDER
     Dosage: UNK

REACTIONS (2)
  - Pre-existing condition improved [Unknown]
  - Therapeutic response unexpected [Unknown]
